FAERS Safety Report 18915283 (Version 1)
Quarter: 2021Q1

REPORT INFORMATION
  Report Type: Spontaneous
  Country: GB (occurrence: GB)
  Receive Date: 20210219
  Receipt Date: 20210219
  Transmission Date: 20210420
  Serious: Yes (Other)
  Sender: FDA-Public Use
  Company Number: GB-JNJFOC-20210229774

PATIENT
  Age: 69 Year
  Sex: Male
  Weight: 108 kg

DRUGS (20)
  1. OZEMPIC [Concomitant]
     Active Substance: SEMAGLUTIDE
     Dosage: USE AS DIRECTED
     Route: 065
     Dates: start: 20201106, end: 20201113
  2. ZOPICLONE [Concomitant]
     Active Substance: ZOPICLONE
     Dosage: TAKE ONE AT NIGH
     Route: 065
     Dates: start: 20201021
  3. ATORVASTATIN [Concomitant]
     Active Substance: ATORVASTATIN
     Dosage: IN THE EVENING
     Route: 065
     Dates: start: 20201021
  4. BETAMETHASONE VALERATE. [Concomitant]
     Active Substance: BETAMETHASONE VALERATE
     Dosage: APPLY AS NEEDED
     Route: 065
     Dates: start: 20201021
  5. FLUCLOXACILLIN [Concomitant]
     Active Substance: FLUCLOXACILLIN
     Route: 065
     Dates: start: 20201223, end: 20201230
  6. CANAGLIFLOZIN [Concomitant]
     Active Substance: CANAGLIFLOZIN
     Route: 065
     Dates: start: 20201113, end: 20210128
  7. CLOTRIMAZOLE. [Concomitant]
     Active Substance: CLOTRIMAZOLE
     Dosage: APPLY 2?3 TIMES/DAY
     Route: 065
     Dates: start: 20210120, end: 20210127
  8. EUMOVATE [Concomitant]
     Active Substance: CLOBETASONE BUTYRATE
     Dosage: APPLY FOR 2 WEEKS
     Route: 065
     Dates: start: 20210128
  9. GLICLAZIDE [Concomitant]
     Active Substance: GLICLAZIDE
     Dates: start: 20201021
  10. QUININE [Concomitant]
     Active Substance: QUININE
     Route: 065
     Dates: start: 20201021
  11. SILDENAFIL. [Concomitant]
     Active Substance: SILDENAFIL
     Dosage: TAKE ONE AN HOUR BEFORE NEEDED
     Route: 065
     Dates: start: 20201021
  12. VOLTAROL [Concomitant]
     Active Substance: DICLOFENAC SODIUM
     Dosage: APPLY
     Route: 065
     Dates: start: 20210112, end: 20210209
  13. BECLOMETASONE [Concomitant]
     Active Substance: BECLOMETHASONE DIPROPIONATE
     Dosage: PUFFS INTO EACH NOSTRIL
     Route: 065
     Dates: start: 20201021
  14. INVOKANA [Suspect]
     Active Substance: CANAGLIFLOZIN
     Indication: PRODUCT USED FOR UNKNOWN INDICATION
     Route: 048
     Dates: start: 20210128
  15. RAMIPRIL. [Concomitant]
     Active Substance: RAMIPRIL
     Route: 065
     Dates: start: 20201021
  16. SUKKARTO [Concomitant]
     Active Substance: METFORMIN HYDROCHLORIDE
     Route: 065
     Dates: start: 20201021
  17. DICLOFENAC SODIUM. [Concomitant]
     Active Substance: DICLOFENAC SODIUM
     Route: 065
     Dates: start: 20210107, end: 20210108
  18. DUAKLIR GENUAIR [Concomitant]
     Active Substance: ACLIDINIUM BROMIDE\FORMOTEROL FUMARATE
     Route: 055
     Dates: start: 20201021
  19. ZEROCREAM [Concomitant]
     Dosage: APPLY AT LEAST TWICE DAILY
     Route: 065
     Dates: start: 20210128
  20. ORAMORPH SR SUSTAINED RELEASE [Concomitant]
     Active Substance: MORPHINE SULFATE
     Dosage: 2.5 ML EVERY 6?8 HOURS
     Route: 065
     Dates: start: 20201021

REACTIONS (3)
  - Malaise [Unknown]
  - Paraesthesia [Recovered/Resolved]
  - Feeling abnormal [Unknown]

NARRATIVE: CASE EVENT DATE: 20210210
